FAERS Safety Report 17410463 (Version 1)
Quarter: 2020Q1

REPORT INFORMATION
  Report Type: Spontaneous
  Country: US (occurrence: US)
  Receive Date: 20200212
  Receipt Date: 20200212
  Transmission Date: 20200409
  Serious: Yes (Hospitalization, Other)
  Sender: FDA-Public Use
  Company Number: US-FRESENIUS KABI-FK202001272

PATIENT
  Age: 60 Year
  Sex: Male
  Weight: 57.6 kg

DRUGS (3)
  1. CYCLOPHOSPHAMIDE. [Suspect]
     Active Substance: CYCLOPHOSPHAMIDE
     Indication: B-CELL DEPLETION THERAPY
     Dosage: 300 MILLIGRAM/SQ. METER, 1 IN 1 D; TOTAL DOSE: 530 MG DAILY
     Route: 042
     Dates: start: 20180118, end: 20180120
  2. FLUDARABINE [Suspect]
     Active Substance: FLUDARABINE PHOSPHATE
     Indication: B-CELL DEPLETION THERAPY
     Dosage: 30 MILLIGRAM/SQ METER, 1 IN 1 D; TOTAL DOSE: 53.5 MG DAILY
     Route: 042
     Dates: start: 20180118, end: 20180120
  3. LISOCABTAGENE MARALEUCEL. [Suspect]
     Active Substance: LISOCABTAGENE MARALEUCEL
     Indication: DIFFUSE LARGE B-CELL LYMPHOMA
     Dosage: 1 X 10^8 CELLS, SINGLE, 1 IN 1 D
     Route: 042
     Dates: start: 20180122, end: 20180122

REACTIONS (4)
  - Clostridium difficile colitis [Recovered/Resolved]
  - Thrombocytopenia [Recovered/Resolved]
  - Leukopenia [Recovered/Resolved]
  - Anaemia [Recovered/Resolved]

NARRATIVE: CASE EVENT DATE: 20180216
